FAERS Safety Report 7493672-9 (Version None)
Quarter: 2011Q2

REPORT INFORMATION
  Report Type: 
  Country: None (occurrence: None)
  Receive Date: 20110513
  Receipt Date: 20110428
  Transmission Date: 20111010
  Serious: Yes (Other)
  Sender: FDA-Public Use
  Company Number: 530#6#2007-00034

PATIENT
  Sex: Male
  Weight: 94 kg

DRUGS (5)
  1. ISICOM [Concomitant]
  2. SELEGILIN [Concomitant]
  3. PARKINSAN [Concomitant]
  4. NEUPRO [Suspect]
     Indication: PARKINSON'S DISEASE
     Dosage: (2 MG QD TRANSDERMAL)
     Route: 062
     Dates: start: 20070206, end: 20070213
  5. LORMETAZEPAM [Concomitant]

REACTIONS (3)
  - ASTHMA [None]
  - APPLICATION SITE REACTION [None]
  - PLEURAL EFFUSION [None]
